FAERS Safety Report 23554973 (Version 1)
Quarter: 2024Q1

REPORT INFORMATION
  Report Type: Spontaneous
  Country: US (occurrence: None)
  Receive Date: 20240222
  Receipt Date: 20240222
  Transmission Date: 20240410
  Serious: No
  Sender: FDA-Public Use
  Company Number: None

PATIENT
  Age: 72 Year
  Sex: Female
  Weight: 84.37 kg

DRUGS (1)
  1. XELJANZ XR [Suspect]
     Active Substance: TOFACITINIB CITRATE
     Indication: Rheumatoid arthritis
     Dosage: TAKE 1 TABLET BY MOUTH DAILY AS DIRECTED.    ?
     Route: 048
     Dates: start: 202009

REACTIONS (2)
  - Malaise [None]
  - Intentional dose omission [None]
